FAERS Safety Report 4964467-2 (Version None)
Quarter: 2006Q2

REPORT INFORMATION
  Report Type: 
  Country: None (occurrence: None)
  Receive Date: 20060406
  Receipt Date: 20051216
  Transmission Date: 20061013
  Serious: Yes (Hospitalization)
  Sender: FDA-Public Use
  Company Number: HQWYE065216DEC05

PATIENT
  Sex: Male

DRUGS (7)
  1. ENBREL [Suspect]
     Indication: RHEUMATOID ARTHRITIS
     Route: 058
     Dates: start: 20050908, end: 20051114
  2. FAMOTIDINE [Concomitant]
     Dates: start: 20050101
  3. AMLODIPINE BESYLATE [Concomitant]
  4. DICLOFENAC SODIUM [Concomitant]
  5. PREDNISOLONE [Concomitant]
  6. METHOTREXATE [Concomitant]
     Dates: start: 20020101, end: 20051201
  7. MELOXICAM [Concomitant]

REACTIONS (3)
  - ANAEMIA [None]
  - SHOULDER PAIN [None]
  - SUBCUTANEOUS HAEMATOMA [None]
